FAERS Safety Report 5135193-4 (Version None)
Quarter: 2006Q4

REPORT INFORMATION
  Report Type: 
  Country: None (occurrence: None)
  Receive Date: 20061024
  Receipt Date: 20061024
  Transmission Date: 20070319
  Serious: No
  Sender: FDA-Public Use
  Company Number: None

PATIENT
  Sex: Male

DRUGS (11)
  1. DULOXETINE 60 MG [Suspect]
     Indication: NEUROPATHY
     Dosage: 60 MG DAILY PO
     Route: 048
     Dates: start: 20060425, end: 20060502
  2. ALPRAZOLAM [Concomitant]
  3. ASPIRIN [Concomitant]
  4. GABAPENTIN [Concomitant]
  5. HYDROCHLOROTHIAZIDE [Concomitant]
  6. LACTULOSE [Concomitant]
  7. METOPROLOL TARTRATE [Concomitant]
  8. MORPHINE [Concomitant]
  9. MULTI-VITAMIN [Concomitant]
  10. OMEPRAZOLE [Concomitant]
  11. VITAMIN B COMPLEX CAP [Concomitant]

REACTIONS (1)
  - HYPOTENSION [None]
